FAERS Safety Report 25983527 (Version 1)
Quarter: 2025Q4

REPORT INFORMATION
  Report Type: Spontaneous
  Country: CN (occurrence: CN)
  Receive Date: 20251031
  Receipt Date: 20251031
  Transmission Date: 20260118
  Serious: Yes (Hospitalization, Other)
  Sender: RANBAXY
  Company Number: CN-SUN PHARMACEUTICAL INDUSTRIES LTD-2025R1-534107

PATIENT
  Age: 69 Year
  Sex: Female

DRUGS (1)
  1. RISPERIDONE [Suspect]
     Active Substance: RISPERIDONE
     Indication: Psychotic disorder
     Dosage: UNK 2-4 MG DAILY
     Route: 065

REACTIONS (3)
  - Respiratory dyskinesia [Recovered/Resolved]
  - Tachypnoea [Recovered/Resolved]
  - Respiratory alkalosis [Recovered/Resolved]
